FAERS Safety Report 7642702-X (Version None)
Quarter: 2011Q3

REPORT INFORMATION
  Report Type: 
  Country: None (occurrence: None)
  Receive Date: 20110728
  Receipt Date: 20110726
  Transmission Date: 20111222
  Serious: No
  Sender: FDA-Public Use
  Company Number: US-PFIZER INC-2011170692

PATIENT
  Sex: Female
  Weight: 48.98 kg

DRUGS (3)
  1. PAXIL [Concomitant]
     Dosage: 60 MG, UNK
     Dates: start: 20110501, end: 20110723
  2. KLONOPIN [Concomitant]
     Indication: ANXIETY
     Dosage: UNK
     Dates: start: 20110101
  3. PRISTIQ [Suspect]
     Indication: DEPRESSION
     Dosage: 50 MG, 1X/DAY
     Route: 048
     Dates: start: 20110720

REACTIONS (5)
  - DRY MOUTH [None]
  - FEELING ABNORMAL [None]
  - ASTHENIA [None]
  - DIZZINESS [None]
  - FATIGUE [None]
